FAERS Safety Report 6938850-X (Version None)
Quarter: 2010Q3

REPORT INFORMATION
  Report Type: 
  Country: None (occurrence: None)
  Receive Date: 20100824
  Receipt Date: 20100429
  Transmission Date: 20110219
  Serious: Yes (Other)
  Sender: FDA-Public Use
  Company Number: BR-ROCHE-722548

PATIENT
  Sex: Female

DRUGS (2)
  1. HERCEPTIN [Suspect]
     Indication: PRODUCT USED FOR UNKNOWN INDICATION
     Dosage: LOADING DOSE
     Route: 065
  2. HERCEPTIN [Suspect]
     Dosage: MAINTENANCE DOSE
     Route: 065

REACTIONS (2)
  - EJECTION FRACTION DECREASED [None]
  - METASTASIS [None]
